FAERS Safety Report 8346475-7 (Version None)
Quarter: 2012Q2

REPORT INFORMATION
  Report Type: 
  Country: None (occurrence: None)
  Receive Date: 20120507
  Receipt Date: 20120507
  Transmission Date: 20120825
  Serious: Yes (Other)
  Sender: FDA-Public Use
  Company Number: None

PATIENT
  Sex: Female

DRUGS (2)
  1. PEGASYS [Suspect]
     Dosage: 180MCG Q WEEKLY SUB Q
     Route: 058
     Dates: start: 20120126, end: 20120430
  2. RIBAPACK 1000MG DAILY ORAL [Suspect]
     Dosage: 1000MG DAILY ORAL
     Route: 048
     Dates: start: 20120126, end: 20120330

REACTIONS (5)
  - NO THERAPEUTIC RESPONSE [None]
  - FATIGUE [None]
  - MALAISE [None]
  - ANAEMIA [None]
  - DYSPNOEA [None]
